FAERS Safety Report 6010201-7 (Version None)
Quarter: 2008Q4

REPORT INFORMATION
  Report Type: 
  Country: None (occurrence: None)
  Receive Date: 20081218
  Receipt Date: 20071106
  Transmission Date: 20090506
  Serious: No
  Sender: FDA-Public Use
  Company Number: A0691746A

PATIENT
  Age: 62 Year
  Sex: Female

DRUGS (3)
  1. FLONASE [Suspect]
     Indication: SEASONAL ALLERGY
     Route: 045
     Dates: end: 20070201
  2. AVAPRO [Concomitant]
  3. SYNTHROID [Concomitant]

REACTIONS (2)
  - ALOPECIA [None]
  - HAIR TEXTURE ABNORMAL [None]
